FAERS Safety Report 22381426 (Version 1)
Quarter: 2023Q2

REPORT INFORMATION
  Report Type: Spontaneous
  Country: CN (occurrence: CN)
  Receive Date: 20230530
  Receipt Date: 20230530
  Transmission Date: 20230721
  Serious: Yes (Life-Threatening, Hospitalization, Other)
  Sender: FDA-Public Use
  Company Number: CN-AMGEN-CHNSP2023087757

PATIENT

DRUGS (3)
  1. FILGRASTIM [Suspect]
     Active Substance: FILGRASTIM
     Indication: Peripheral blood stem cell apheresis
     Dosage: 10 MICROGRAM/KILOGRAM
     Route: 065
     Dates: start: 201311, end: 201805
  2. CYCLOPHOSPHAMIDE [Concomitant]
     Active Substance: CYCLOPHOSPHAMIDE
     Indication: Peripheral blood stem cell apheresis
     Dosage: 30 MILLIGRAM/KILOGRAM (DAY1-2)
  3. ETOPOSIDE [Concomitant]
     Active Substance: ETOPOSIDE
     Indication: Peripheral blood stem cell apheresis
     Dosage: 5 MILLIGRAM/KILOGRAM (DAY 1-2)

REACTIONS (5)
  - Neutropenia [Unknown]
  - Unevaluable event [Unknown]
  - Thrombocytopenia [Unknown]
  - Drug ineffective [Unknown]
  - Adverse event [Unknown]
